FAERS Safety Report 17649446 (Version 1)
Quarter: 2020Q2

REPORT INFORMATION
  Report Type: Spontaneous
  Country: GB (occurrence: GB)
  Receive Date: 20200409
  Receipt Date: 20200409
  Transmission Date: 20200713
  Serious: Yes (Other)
  Sender: FDA-Public Use
  Company Number: GB-TEVA-2020-GB-1221144

PATIENT
  Age: 80 Year
  Sex: Female
  Weight: 59.41 kg

DRUGS (9)
  1. CASSIA [Concomitant]
     Dosage: 7.5 MG
  2. PARACETAMOL [Concomitant]
     Active Substance: ACETAMINOPHEN
  3. FUROSEMIDE. [Concomitant]
     Active Substance: FUROSEMIDE
  4. PREDNISOLONE. [Suspect]
     Active Substance: PREDNISOLONE
     Indication: PULMONARY FIBROSIS
     Dosage: SIX 5MG TABS ONCE DAILY (TAKEN IN MORNING)FOR 14 DAYS THEN FOUR TABS DAILY FOR SIX WEEKS
     Route: 048
     Dates: end: 20200312
  5. FYBOGEL [Concomitant]
     Active Substance: PLANTAGO OVATA SEED
  6. ACIDEX [Concomitant]
     Active Substance: CALCIUM CARBONATE\SODIUM ALGINATE\SODIUM BICARBONATE
  7. OMEPRAZOLE. [Concomitant]
     Active Substance: OMEPRAZOLE
     Dosage: 40 MG
  8. ORAMORPH [Concomitant]
     Active Substance: MORPHINE SULFATE
  9. MST CONTINUS [Concomitant]
     Active Substance: MORPHINE SULFATE
     Dosage: 10 MG

REACTIONS (4)
  - Anxiety [Not Recovered/Not Resolved]
  - Disturbance in attention [Not Recovered/Not Resolved]
  - Feeling abnormal [Not Recovered/Not Resolved]
  - Tension [Not Recovered/Not Resolved]

NARRATIVE: CASE EVENT DATE: 20200312
